FAERS Safety Report 8354688-3 (Version None)
Quarter: 2012Q2

REPORT INFORMATION
  Report Type: 
  Country: None (occurrence: None)
  Receive Date: 20120511
  Receipt Date: 20120507
  Transmission Date: 20120825
  Serious: Yes (Life-Threatening, Hospitalization, Other)
  Sender: FDA-Public Use
  Company Number: US-ASTRAZENECA-2011SE13473

PATIENT
  Age: 59 Year
  Sex: Male

DRUGS (10)
  1. SEROQUEL [Suspect]
     Indication: BIPOLAR I DISORDER
     Route: 048
  2. LAMICTAL [Concomitant]
  3. EFFEXOR XR [Concomitant]
  4. SEROQUEL [Suspect]
     Route: 048
  5. TRAZODONE HCL [Concomitant]
     Indication: SLEEP DISORDER
     Dosage: 50 - 100 MG
  6. SEROQUEL [Suspect]
     Indication: BIPOLAR DISORDER
     Route: 048
  7. KLONOPIN [Concomitant]
  8. SEROQUEL [Suspect]
     Route: 048
  9. ABILIFY [Concomitant]
  10. LITHIUM CARBONATE [Concomitant]

REACTIONS (31)
  - IMPAIRED WORK ABILITY [None]
  - CONDITION AGGRAVATED [None]
  - WOUND [None]
  - SUICIDAL BEHAVIOUR [None]
  - ATTENTION DEFICIT/HYPERACTIVITY DISORDER [None]
  - BRADYPHRENIA [None]
  - ENCEPHALOPATHY [None]
  - DISTURBANCE IN ATTENTION [None]
  - DYSPHAGIA [None]
  - SUICIDAL IDEATION [None]
  - CARDIAC ARREST [None]
  - PROSTATE CANCER METASTATIC [None]
  - SUICIDE ATTEMPT [None]
  - DEPRESSION [None]
  - BRAIN INJURY [None]
  - COMPENSATION NEUROSIS [None]
  - CEREBROVASCULAR ACCIDENT [None]
  - DYSPHORIA [None]
  - INTENTIONAL DRUG MISUSE [None]
  - ABNORMAL BEHAVIOUR [None]
  - HEAD INJURY [None]
  - COMA [None]
  - NEOPLASM MALIGNANT [None]
  - COGNITIVE DISORDER [None]
  - PSYCHIATRIC DECOMPENSATION [None]
  - ANXIETY [None]
  - AGITATION [None]
  - ROAD TRAFFIC ACCIDENT [None]
  - PROSTATE CANCER [None]
  - MEMORY IMPAIRMENT [None]
  - SENSORY LOSS [None]
